FAERS Safety Report 7427691-5 (Version None)
Quarter: 2011Q2

REPORT INFORMATION
  Report Type: 
  Country: None (occurrence: None)
  Receive Date: 20110407
  Receipt Date: 20110404
  Transmission Date: 20111010
  Serious: Yes (Other)
  Sender: FDA-Public Use
  Company Number: 2011028105

PATIENT
  Age: 58 Year
  Sex: Male
  Weight: 68.9467 kg

DRUGS (14)
  1. PRAVASTATIN [Concomitant]
  2. ZEMAIRA [Suspect]
     Indication: ALPHA-1 ANTI-TRYPSIN DEFICIENCY
     Dosage: SEE IMAGE
     Route: 042
     Dates: start: 20090720
  3. URSODIOL [Concomitant]
  4. FOSAMAX [Concomitant]
  5. PANTOPRAZOLE [Concomitant]
  6. BACTRIM [Concomitant]
  7. PROGRAF [Concomitant]
  8. AZITHROMYCIN [Concomitant]
  9. ACETAMINOPHEN [Concomitant]
  10. DIPHENHYDRAMINE HCL [Concomitant]
  11. PREDNISONE [Concomitant]
  12. EPIPEN [Concomitant]
  13. RAPAMUNE [Concomitant]
  14. LOPRESSOR [Concomitant]

REACTIONS (5)
  - DIZZINESS [None]
  - HYPERTENSION [None]
  - VISUAL FIELD DEFECT [None]
  - ABNORMAL SENSATION IN EYE [None]
  - PARAESTHESIA [None]
